FAERS Safety Report 8625200-6 (Version None)
Quarter: 2012Q3

REPORT INFORMATION
  Report Type: 
  Country: None (occurrence: None)
  Receive Date: 20120827
  Receipt Date: 20120820
  Transmission Date: 20120928
  Serious: Yes (Death)
  Sender: FDA-Public Use
  Company Number: VN-BAXTER-2012BAX015117

PATIENT
  Age: 45 Year
  Sex: Male

DRUGS (2)
  1. DIANEAL [Suspect]
     Dosage: 2 BAGS PER DAY
     Route: 033
     Dates: end: 20120807
  2. DIANEAL [Suspect]
     Dosage: 2 BAGS PER DAY
     Route: 033
     Dates: end: 20120807

REACTIONS (1)
  - CARDIAC FAILURE [None]
